FAERS Safety Report 4301268-2 (Version None)
Quarter: 2004Q1

REPORT INFORMATION
  Report Type: 
  Country: None (occurrence: None)
  Receive Date: 20040220
  Receipt Date: 20040220
  Transmission Date: 20041129
  Serious: Yes (Other)
  Sender: FDA-Public Use
  Company Number: None

PATIENT
  Sex: Male

DRUGS (2)
  1. WARFARIN SODIUM [Suspect]
     Indication: MITRAL VALVE REPLACEMENT
     Dosage: 10 MG QD ^O^
     Dates: start: 20030101
  2. WARFARIN SODIUM [Suspect]
     Indication: MITRAL VALVE STENOSIS
     Dosage: 10 MG QD ^O^
     Dates: start: 20030101

REACTIONS (1)
  - PROTHROMBIN LEVEL ABNORMAL [None]
